FAERS Safety Report 5829668-X (Version None)
Quarter: 2008Q3

REPORT INFORMATION
  Report Type: 
  Country: None (occurrence: None)
  Receive Date: 20080729
  Receipt Date: 20080715
  Transmission Date: 20090109
  Serious: Yes (Hospitalization)
  Sender: FDA-Public Use
  Company Number: 2008018109

PATIENT
  Age: 66 Year
  Sex: Female

DRUGS (1)
  1. ROGAINE [Suspect]
     Indication: DRUG USE FOR UNKNOWN INDICATION
     Dosage: ONCE, ORAL
     Route: 048
     Dates: start: 20080709, end: 20080709

REACTIONS (4)
  - ABDOMINAL PAIN [None]
  - ACCIDENTAL EXPOSURE [None]
  - HEART RATE INCREASED [None]
  - INCORRECT ROUTE OF DRUG ADMINISTRATION [None]
